FAERS Safety Report 8509067-2 (Version None)
Quarter: 2012Q3

REPORT INFORMATION
  Report Type: 
  Country: None (occurrence: None)
  Receive Date: 20120703
  Receipt Date: 20120620
  Transmission Date: 20120928
  Serious: Yes (Other)
  Sender: FDA-Public Use
  Company Number: 2012SP034091

PATIENT
  Age: 4 Year
  Sex: Male

DRUGS (1)
  1. CELESTAMIN (BETAMETHASONE/DEXCHLORPHENIRAMINE MALEATE) (BETAMETHASONE/ [Suspect]
     Indication: PRODUCT USED FOR UNKNOWN INDICATION
     Dosage: PO
     Route: 048

REACTIONS (3)
  - HYPOGLYCAEMIA [None]
  - CONVULSION [None]
  - ADRENAL INSUFFICIENCY [None]
